FAERS Safety Report 10720506 (Version 3)
Quarter: 2015Q1

REPORT INFORMATION
  Report Type: Report from Study
  Country: PH (occurrence: PH)
  Receive Date: 20150119
  Receipt Date: 20150330
  Transmission Date: 20150721
  Serious: Yes (Hospitalization)
  Sender: FDA-Public Use
  Company Number: PH-ROCHE-1520469

PATIENT
  Age: 75 Year
  Sex: Female
  Weight: 51.2 kg

DRUGS (19)
  1. METHOTREXATE [Concomitant]
     Active Substance: METHOTREXATE
     Route: 048
     Dates: start: 20130907
  2. VIDASTAT [Concomitant]
     Route: 048
     Dates: start: 20130710, end: 20130712
  3. VASTAREL MR [Concomitant]
     Indication: HYPERTENSION
     Route: 048
     Dates: start: 20130713
  4. ARCOXIA [Concomitant]
     Active Substance: ETORICOXIB
     Indication: PROPHYLAXIS
     Route: 048
     Dates: start: 20130702, end: 20130704
  5. PREDNISONE. [Concomitant]
     Active Substance: PREDNISONE
     Indication: PROPHYLAXIS
     Route: 048
     Dates: start: 20100709
  6. VIDASTAT [Concomitant]
     Indication: HYPERLIPIDAEMIA
     Route: 048
     Dates: start: 20120312, end: 20130629
  7. TURMERIC [Concomitant]
     Active Substance: TURMERIC
     Indication: PROPHYLAXIS
     Dosage: 1 TABLE SPOON
     Route: 048
     Dates: start: 20130401, end: 20130701
  8. FOLART [Concomitant]
     Route: 048
     Dates: start: 20140515, end: 20140607
  9. EZETROL [Concomitant]
     Active Substance: EZETIMIBE
     Route: 048
     Dates: start: 20130713, end: 20130904
  10. LEGALON [Concomitant]
     Active Substance: MILK THISTLE
     Indication: ASPARTATE AMINOTRANSFERASE INCREASED
     Route: 048
     Dates: start: 20130713, end: 20130903
  11. NORVASC [Concomitant]
     Active Substance: AMLODIPINE BESYLATE
     Indication: HYPERTENSION
     Route: 048
     Dates: start: 20090103
  12. LEGALON [Concomitant]
     Active Substance: MILK THISTLE
     Indication: ALANINE AMINOTRANSFERASE INCREASED
     Route: 048
     Dates: start: 20130904
  13. FOLART [Concomitant]
     Indication: THROMBOCYTOPENIA
     Route: 048
     Dates: start: 20110427
  14. LEVOFLOXACIN. [Concomitant]
     Active Substance: LEVOFLOXACIN
     Indication: COUGH
     Route: 048
     Dates: start: 20140320, end: 20140328
  15. METHOTREXATE [Concomitant]
     Active Substance: METHOTREXATE
     Indication: PROPHYLAXIS
     Route: 048
     Dates: start: 20060113, end: 20130904
  16. CALTRATE [Concomitant]
     Active Substance: CALCIUM CARBONATE
     Indication: PROPHYLAXIS
     Dosage: 1 TABLET
     Route: 048
     Dates: start: 20081002
  17. TOCILIZUMAB [Suspect]
     Active Substance: TOCILIZUMAB
     Indication: RHEUMATOID ARTHRITIS
     Dosage: LAST DOSE PRIOR TO EVENT  9.2MG/KG?DATE OF LAST DOSE PROIR TO EVENT : 22/DEC/2014
     Route: 042
     Dates: start: 20121128
  18. ESOMEPRAZOLE [Concomitant]
     Active Substance: ESOMEPRAZOLE
     Indication: GASTRITIS
     Route: 048
     Dates: start: 20130907, end: 20130922
  19. EZETROL [Concomitant]
     Active Substance: EZETIMIBE
     Indication: DYSLIPIDAEMIA
     Route: 048
     Dates: start: 20140320

REACTIONS (2)
  - Acute myocardial infarction [Recovered/Resolved]
  - Acute coronary syndrome [Recovered/Resolved]

NARRATIVE: CASE EVENT DATE: 20150107
